FAERS Safety Report 10017272 (Version 1)
Quarter: 2014Q1

REPORT INFORMATION
  Report Type: Spontaneous
  Country: CA (occurrence: None)
  Receive Date: 20140313
  Receipt Date: 20140313
  Transmission Date: 20141002
  Serious: Yes (Other)
  Sender: FDA-Public Use
  Company Number: None

PATIENT
  Age: 37 Year
  Sex: Male
  Weight: 90 kg

DRUGS (1)
  1. TAMIFLU 75MG GENENTECH [Suspect]
     Indication: INFLUENZA
     Route: 048
     Dates: start: 20140302, end: 20140309

REACTIONS (2)
  - Nightmare [None]
  - Tinnitus [None]
